FAERS Safety Report 8003236-6 (Version None)
Quarter: 2011Q4

REPORT INFORMATION
  Report Type: 
  Country: None (occurrence: None)
  Receive Date: 20111222
  Receipt Date: 20111216
  Transmission Date: 20120403
  Serious: Yes (Hospitalization, Other)
  Sender: FDA-Public Use
  Company Number: PHEH2010US03466

PATIENT
  Sex: Female
  Weight: 69.841 kg

DRUGS (35)
  1. MIDAZOLAM HYDROCHLORIDE [Concomitant]
     Dosage: 2 MG, UNK
  2. VENLAFAXINE HCL [Concomitant]
     Dosage: 75 MG, QD
     Route: 048
  3. ZOMETA [Suspect]
     Dosage: UNK UKN, QMO
     Dates: start: 20050501, end: 20080616
  4. PERCOCET [Concomitant]
  5. CARVEDILOL [Concomitant]
     Dosage: 3.125 MG, BID
     Route: 048
  6. FLEXERIL [Concomitant]
  7. COREG [Concomitant]
  8. CEFAZOLIN SODIUM [Concomitant]
     Dosage: 1000 MG, UNK
     Route: 042
  9. LISINOPRIL [Concomitant]
     Dosage: 10 MG, UNK
     Route: 048
  10. METRONIDAZOLE [Concomitant]
     Dosage: 500 MG, Q8H
  11. ARANESP [Concomitant]
     Dosage: UNK UKN, QW3
  12. HYDRALAZINE HCL [Concomitant]
  13. NEOSTIGMINE METHYLSULFATE [Concomitant]
     Dosage: 10 MG, UNK
  14. LASIX [Concomitant]
     Dosage: 40 MG, PRN
     Route: 048
  15. LOVENOX [Concomitant]
     Dosage: 1 MG, QD
     Route: 048
  16. ACETYLCYSTEINE [Concomitant]
     Dosage: 600 MG, BID
     Route: 048
  17. UNASYN [Concomitant]
  18. KEPPRA [Concomitant]
  19. DROPERIDOL [Concomitant]
     Dosage: 5 MG, UNK
  20. FENTANYL CITRATE [Concomitant]
     Dosage: 250 UG, UNK
  21. DALTEPARIN SODIUM [Concomitant]
     Dosage: 0.24 ML, Q12H
     Route: 058
  22. INSULIN [Concomitant]
  23. EFFEXOR [Concomitant]
  24. NEURONTIN [Concomitant]
  25. REVLIMID [Concomitant]
  26. METOPROLOL TARTRATE [Concomitant]
     Dosage: 5 MG, UNK
     Route: 042
  27. CLINDAMYCIN [Concomitant]
     Dosage: 600 MG, UNK
  28. FAMOTIDINE [Concomitant]
     Route: 042
  29. ZOLPIDEM [Concomitant]
     Dosage: 5 MG, QHS
     Route: 048
  30. OXYCONTIN [Concomitant]
  31. KEFLEX [Concomitant]
     Dosage: 500 MG, TID
     Route: 048
  32. ZOSYN [Concomitant]
  33. DEXAMETHASONE SODIUM PHOSPHATE [Concomitant]
     Dosage: 4 MG, UNK
  34. ETOMIDATE [Concomitant]
     Dosage: 40 MG, UNK
     Route: 042
  35. LORTAB [Concomitant]

REACTIONS (100)
  - DEFORMITY [None]
  - TOOTH LOSS [None]
  - OVERDOSE [None]
  - CELLULITIS [None]
  - OSTEOARTHRITIS [None]
  - MITRAL VALVE INCOMPETENCE [None]
  - DIZZINESS [None]
  - ABSCESS JAW [None]
  - THROMBOCYTOPENIA [None]
  - METASTASES TO SPINE [None]
  - CUSHINGOID [None]
  - OSTEOSCLEROSIS [None]
  - FALL [None]
  - LOOSE TOOTH [None]
  - PULMONARY OEDEMA [None]
  - GASTROOESOPHAGEAL REFLUX DISEASE [None]
  - OEDEMA PERIPHERAL [None]
  - CARDIOMYOPATHY [None]
  - OSTEOMYELITIS ACUTE [None]
  - INTERVERTEBRAL DISC DISORDER [None]
  - CARDIAC FAILURE CONGESTIVE [None]
  - PNEUMONIA [None]
  - CLOSTRIDIAL INFECTION [None]
  - OVERWEIGHT [None]
  - PLEURAL EFFUSION [None]
  - DEPRESSION [None]
  - KYPHOSIS [None]
  - BRADYCARDIA [None]
  - CLOSTRIDIUM DIFFICILE COLITIS [None]
  - FAECAL INCONTINENCE [None]
  - LOSS OF CONSCIOUSNESS [None]
  - OSTEONECROSIS OF JAW [None]
  - EXPOSED BONE IN JAW [None]
  - OSTEOLYSIS [None]
  - INFECTION [None]
  - PLASMACYTOMA [None]
  - EMPHYSEMA [None]
  - TRICUSPID VALVE INCOMPETENCE [None]
  - OSTEORADIONECROSIS [None]
  - BACTERIAL INFECTION [None]
  - HYPERKALAEMIA [None]
  - ABDOMINAL PAIN [None]
  - AZOTAEMIA [None]
  - ASTHENIA [None]
  - PAIN [None]
  - EMOTIONAL DISTRESS [None]
  - ANXIETY [None]
  - DYSPHAGIA [None]
  - DIASTOLIC DYSFUNCTION [None]
  - CONVULSION [None]
  - DEHYDRATION [None]
  - HYPERTENSION [None]
  - PERIPHERAL VASCULAR DISORDER [None]
  - ESSENTIAL THROMBOCYTHAEMIA [None]
  - GAIT DISTURBANCE [None]
  - BENCE JONES PROTEINURIA [None]
  - CORONARY ARTERY DISEASE [None]
  - ATELECTASIS [None]
  - LEFT VENTRICULAR HYPERTROPHY [None]
  - DEEP VEIN THROMBOSIS [None]
  - BACK PAIN [None]
  - BONE DEFORMITY [None]
  - HYPERGLYCAEMIA [None]
  - SEPSIS [None]
  - RENAL ATROPHY [None]
  - INJURY [None]
  - BONE NEOPLASM MALIGNANT [None]
  - URINARY TRACT INFECTION [None]
  - NEUROPATHY PERIPHERAL [None]
  - SYNOVIAL CYST [None]
  - HYPOTENSION [None]
  - RENAL FAILURE CHRONIC [None]
  - INTERVERTEBRAL DISC PROTRUSION [None]
  - FAECALOMA [None]
  - MUSCULOSKELETAL STIFFNESS [None]
  - BONE LESION [None]
  - JAW FRACTURE [None]
  - MULTIPLE MYELOMA [None]
  - ANAEMIA [None]
  - MASTICATION DISORDER [None]
  - SYNCOPE [None]
  - HAEMATOMA [None]
  - CHRONIC SINUSITIS [None]
  - MENTAL STATUS CHANGES [None]
  - MENINGIOMA [None]
  - HAEMANGIOMA [None]
  - VISION BLURRED [None]
  - LUMBAR SPINAL STENOSIS [None]
  - PHYSICAL DISABILITY [None]
  - HYPOXIA [None]
  - RIB FRACTURE [None]
  - SOMNOLENCE [None]
  - BLOOD IMMUNOGLOBULIN G DECREASED [None]
  - TIBIA FRACTURE [None]
  - NASAL POLYPS [None]
  - PARAESTHESIA [None]
  - COMPRESSION FRACTURE [None]
  - DYSPNOEA [None]
  - RESPIRATORY FAILURE [None]
  - HYPOCALCAEMIA [None]
